FAERS Safety Report 8838024 (Version 1)
Quarter: 2012Q4

REPORT INFORMATION
  Report Type: 
  Country: US (occurrence: US)
  Receive Date: 20121012
  Receipt Date: 20121012
  Transmission Date: 20130627
  Serious: Yes (Hospitalization)
  Sender: FDA-Public Use
  Company Number: US-ROCHE-1125398

PATIENT
  Sex: Female
  Weight: 105 kg

DRUGS (5)
  1. NUTROPIN AQ [Suspect]
     Indication: HYPOPITUITARISM
     Route: 058
  2. SYNTHROID [Concomitant]
  3. HYDROCORTISONE [Concomitant]
  4. METFORMIN [Concomitant]
  5. OCTREOTIDE [Concomitant]

REACTIONS (2)
  - Cellulitis [Unknown]
  - Photophobia [Unknown]
